FAERS Safety Report 4678779-3 (Version None)
Quarter: 2005Q2

REPORT INFORMATION
  Report Type: 
  Country: None (occurrence: None)
  Receive Date: 20050531
  Receipt Date: 20050516
  Transmission Date: 20051028
  Serious: Yes (Other)
  Sender: FDA-Public Use
  Company Number: S05-USA-01449-01

PATIENT
  Age: 27 Year
  Sex: Female
  Weight: 112.9457 kg

DRUGS (6)
  1. CELEXA [Suspect]
     Indication: DEPRESSION
     Dosage: 40 MG QD PO
     Route: 048
     Dates: start: 20020906, end: 20040707
  2. WELLBUTRIN [Suspect]
     Indication: DEPRESSION
     Dosage: 300 MG QD PO
     Route: 048
     Dates: start: 20040114, end: 20041012
  3. WELLBUTRIN [Suspect]
     Indication: DEPRESSION
     Dosage: 150 MG QD PO
     Route: 048
     Dates: start: 20041013, end: 20041019
  4. WELLBUTRIN [Suspect]
     Indication: DEPRESSION
     Dosage: 300 MG QD PO
     Route: 048
     Dates: start: 20040114, end: 20041012
  5. ALLEGRA [Suspect]
     Indication: SEASONAL ALLERGY
     Dosage: 60 MG BID PO
     Route: 048
     Dates: start: 20040407, end: 20040707
  6. ZANTAC [Suspect]
     Indication: GASTROOESOPHAGEAL REFLUX DISEASE
     Dosage: 150 MG QD PO
     Route: 048
     Dates: start: 20030520, end: 20040207

REACTIONS (4)
  - BLEEDING PERIPARTUM [None]
  - DRUG EXPOSURE DURING PREGNANCY [None]
  - PREGNANCY [None]
  - PREMATURE SEPARATION OF PLACENTA [None]
